FAERS Safety Report 6157986-7 (Version None)
Quarter: 2009Q2

REPORT INFORMATION
  Report Type: 
  Country: None (occurrence: None)
  Receive Date: 20090417
  Receipt Date: 20090406
  Transmission Date: 20091009
  Serious: Yes (Life-Threatening, Hospitalization, Other)
  Sender: FDA-Public Use
  Company Number: CH-PFIZER INC-2009189049

PATIENT

DRUGS (10)
  1. SORTIS [Suspect]
  2. LYRICA [Suspect]
     Dosage: 75 MG, UNK
     Route: 048
     Dates: start: 20081002, end: 20081023
  3. LIORESAL ^NOVARTIS^ [Suspect]
     Dosage: UNK
     Route: 048
  4. ZESTRIL [Suspect]
  5. TIZANIDINE HCL [Concomitant]
     Dosage: UNK
     Route: 048
  6. EFFEXOR [Concomitant]
     Route: 048
  7. OLFEN [Concomitant]
     Dosage: UNK
  8. LISINOPRIL [Concomitant]
     Dosage: UNK
     Route: 048
  9. ALLOPURINOL [Concomitant]
     Dosage: UNK
     Route: 048
  10. EZETIMIBE/SIMVASTATIN [Concomitant]
     Dosage: UNK
     Route: 048

REACTIONS (4)
  - HEPATITIS [None]
  - HYPERTENSION [None]
  - HYPERURICAEMIA [None]
  - LIVER DISORDER [None]
